FAERS Safety Report 4708967-9 (Version None)
Quarter: 2005Q3

REPORT INFORMATION
  Report Type: 
  Country: None (occurrence: None)
  Receive Date: 20050705
  Receipt Date: 20050623
  Transmission Date: 20060218
  Serious: Yes (Hospitalization)
  Sender: FDA-Public Use
  Company Number: 2005084479

PATIENT
  Age: 68 Year
  Sex: Female
  Weight: 70 kg

DRUGS (5)
  1. PHENYTOIN SODIUM [Suspect]
     Indication: EPILEPSY
     Dosage: 300 MG (100 MG, 3 IN 1 D), ORAL
     Route: 048
     Dates: start: 20050315, end: 20050405
  2. ATENOLOL [Suspect]
     Indication: HYPERTENSION
     Dosage: 100 MG (50 MG, 3 IN 1 D), ORAL
     Route: 048
     Dates: start: 20050225, end: 20050405
  3. FUROSEMIDE [Suspect]
     Indication: HYPERTENSION
     Dosage: 40 MG (40 MG, 1 IN 1 D), ORAL
     Route: 048
     Dates: start: 20050322, end: 20050405
  4. DEXAMETHASONE [Concomitant]
  5. OMEPRAZOLE [Concomitant]

REACTIONS (2)
  - PNEUMONITIS [None]
  - RASH ERYTHEMATOUS [None]
